FAERS Safety Report 9833232 (Version 1)
Quarter: 2014Q1

REPORT INFORMATION
  Report Type: Spontaneous
  Country: US (occurrence: US)
  Receive Date: 20140121
  Receipt Date: 20140121
  Transmission Date: 20141002
  Serious: Yes (Life-Threatening)
  Sender: FDA-Public Use
  Company Number: US-ABBVIE-14P-163-1191897-00

PATIENT
  Sex: 0
  Weight: 113.5 kg

DRUGS (5)
  1. DEPAKOTE [Suspect]
     Indication: BIPOLAR DISORDER
  2. ZIPRASIDONE [Suspect]
     Indication: BIPOLAR DISORDER
  3. TEGRETOL [Suspect]
     Indication: BIPOLAR DISORDER
  4. INVEGA [Suspect]
     Indication: BIPOLAR DISORDER
     Dates: start: 2009
  5. KLONOPIN [Concomitant]
     Indication: TOURETTE^S DISORDER

REACTIONS (12)
  - Hypersensitivity [Unknown]
  - Abasia [Recovered/Resolved]
  - Balance disorder [Recovered/Resolved]
  - Feeling drunk [Recovered/Resolved]
  - Dizziness [Recovered/Resolved]
  - Dizziness [Recovered/Resolved]
  - Adverse drug reaction [Recovered/Resolved]
  - Fall [Recovered/Resolved]
  - Off label use [Unknown]
  - Weight increased [Unknown]
  - Drug ineffective [Unknown]
  - Bipolar disorder [Unknown]
